FAERS Safety Report 10775714 (Version 2)
Quarter: 2015Q1

REPORT INFORMATION
  Report Type: Spontaneous
  Country: US (occurrence: US)
  Receive Date: 20150209
  Receipt Date: 20150217
  Transmission Date: 20150721
  Serious: Yes (Other)
  Sender: FDA-Public Use
  Company Number: US-SA-2015SA013894

PATIENT
  Age: 72 Year
  Sex: Female
  Weight: 52.61 kg

DRUGS (15)
  1. PLAVIX [Suspect]
     Active Substance: CLOPIDOGREL BISULFATE
     Indication: CARDIAC DISORDER
     Route: 065
     Dates: start: 2006, end: 201304
  2. CITRACAL [Concomitant]
     Active Substance: CALCIUM CITRATE
  3. ZOLPIDEM [Concomitant]
     Active Substance: ZOLPIDEM\ZOLPIDEM TARTRATE
  4. SYNTHROID [Concomitant]
     Active Substance: LEVOTHYROXINE SODIUM
  5. CORTISONE [Concomitant]
     Active Substance: CORTISONE\HYDROCORTISONE
  6. COUMADIN [Concomitant]
     Active Substance: WARFARIN SODIUM
  7. CLARITIN [Concomitant]
     Active Substance: LORATADINE
  8. LORAZEPAM. [Concomitant]
     Active Substance: LORAZEPAM
  9. ALTACE [Concomitant]
     Active Substance: RAMIPRIL
  10. TOPROL XL [Concomitant]
     Active Substance: METOPROLOL SUCCINATE
     Dosage: FREQUENCY: QPM
  11. ASPIRIN. [Concomitant]
     Active Substance: ASPIRIN
  12. WARFARIN [Concomitant]
     Active Substance: WARFARIN
  13. LIBRAX [Concomitant]
     Active Substance: CHLORDIAZEPOXIDE HYDROCHLORIDE\CLIDINIUM BROMIDE
     Dosage: 5/2.5MG
  14. VYTORIN [Concomitant]
     Active Substance: EZETIMIBE\SIMVASTATIN
     Dosage: 1020MG
  15. PENICILLIN [Concomitant]
     Active Substance: PENICILLIN

REACTIONS (1)
  - Atrial fibrillation [Unknown]

NARRATIVE: CASE EVENT DATE: 201304
